FAERS Safety Report 8445734-7 (Version None)
Quarter: 2012Q2

REPORT INFORMATION
  Report Type: 
  Country: None (occurrence: None)
  Receive Date: 20120618
  Receipt Date: 20120612
  Transmission Date: 20120825
  Serious: Yes (Hospitalization)
  Sender: FDA-Public Use
  Company Number: JP-GLAXOSMITHKLINE-B0789100A

PATIENT
  Sex: Male

DRUGS (9)
  1. LAMICTAL [Suspect]
     Dosage: 100MG PER DAY
     Route: 048
     Dates: end: 20120305
  2. ALLEGRA [Concomitant]
     Indication: URTICARIA
     Dosage: 240MG PER DAY
     Route: 048
     Dates: start: 20111025, end: 20120426
  3. NORVASC [Concomitant]
     Indication: HYPERTENSION
     Dosage: 10MG PER DAY
     Route: 048
     Dates: start: 20111025
  4. LAMICTAL [Suspect]
     Dosage: 200MG PER DAY
     Route: 048
  5. MAGLAX [Concomitant]
     Indication: CONSTIPATION
     Dosage: 2970MG PER DAY
     Route: 048
     Dates: start: 20111025
  6. CANDESARTAN CILEXETIL [Concomitant]
     Indication: HYPERTENSION
     Dosage: 4MG PER DAY
     Route: 048
     Dates: start: 20111025
  7. LAMICTAL [Suspect]
     Indication: BIPOLAR DISORDER RELAPSE PROPHYLAXIS
     Route: 048
     Dates: start: 20120110
  8. URSO 250 [Concomitant]
     Indication: HEPATIC FUNCTION ABNORMAL
     Dosage: 200MG PER DAY
     Route: 048
     Dates: start: 20111025, end: 20120420
  9. SEROQUEL [Concomitant]
     Indication: BIPOLAR DISORDER
     Dosage: 400MG PER DAY
     Route: 048
     Dates: start: 20111025

REACTIONS (11)
  - BASOPHIL PERCENTAGE DECREASED [None]
  - RASH [None]
  - MONOCYTE PERCENTAGE INCREASED [None]
  - ERYTHEMA [None]
  - SWELLING FACE [None]
  - EOSINOPHIL PERCENTAGE DECREASED [None]
  - DRUG ERUPTION [None]
  - EOSINOPHIL PERCENTAGE INCREASED [None]
  - NEUTROPHIL PERCENTAGE INCREASED [None]
  - LYMPHOCYTE PERCENTAGE DECREASED [None]
  - INSOMNIA [None]
